FAERS Safety Report 12238754 (Version 1)
Quarter: 2016Q2

REPORT INFORMATION
  Report Type: Spontaneous
  Country: US (occurrence: PR)
  Receive Date: 20160405
  Receipt Date: 20160405
  Transmission Date: 20160815
  Serious: No
  Sender: FDA-Public Use
  Company Number: US-TEVA-594102USA

PATIENT
  Sex: Male
  Weight: 74.91 kg

DRUGS (8)
  1. ATENOLOL. [Suspect]
     Active Substance: ATENOLOL
     Indication: HYPERTENSION
     Dosage: 25 MILLIGRAM DAILY;
     Route: 048
  2. DIGOXIN. [Suspect]
     Active Substance: DIGOXIN
     Indication: CARDIAC DISORDER
     Dosage: 125 MILLIGRAM DAILY;
     Route: 048
     Dates: start: 1996
  3. CIALIS [Suspect]
     Active Substance: TADALAFIL
     Route: 065
  4. WARFARIN [Suspect]
     Active Substance: WARFARIN
     Indication: THROMBOSIS PROPHYLAXIS
     Dosage: 3 MILLIGRAM DAILY;
     Route: 048
     Dates: start: 1996
  5. LEVITRA [Suspect]
     Active Substance: VARDENAFIL HYDROCHLORIDE TRIHYDRATE
     Indication: ERECTILE DYSFUNCTION
     Route: 065
  6. WARFARIN [Suspect]
     Active Substance: WARFARIN
     Indication: HEART RATE IRREGULAR
  7. CAPTOPRIL. [Suspect]
     Active Substance: CAPTOPRIL
     Indication: HYPERTENSION
     Dosage: 25 MILLIGRAM DAILY;
     Route: 048
     Dates: start: 1996
  8. VIAGRA [Suspect]
     Active Substance: SILDENAFIL CITRATE
     Indication: ERECTILE DYSFUNCTION
     Route: 048

REACTIONS (7)
  - Asthenia [Unknown]
  - Inappropriate schedule of drug administration [Unknown]
  - Erectile dysfunction [Unknown]
  - Flushing [Unknown]
  - Visual impairment [Recovered/Resolved]
  - Adverse event [Unknown]
  - Head discomfort [Unknown]
